FAERS Safety Report 5194019-3 (Version None)
Quarter: 2006Q4

REPORT INFORMATION
  Report Type: 
  Country: None (occurrence: None)
  Receive Date: 20061222
  Receipt Date: 20061213
  Transmission Date: 20070319
  Serious: No
  Sender: FDA-Public Use
  Company Number: 2006P1000589

PATIENT
  Sex: Female

DRUGS (3)
  1. NICARDIPINE HYDROCHLORIDE [Suspect]
     Indication: DRUG USE FOR UNKNOWN INDICATION
     Dosage: 15 MG; QH; IV
     Route: 042
  2. AMIODARONE HCL [Suspect]
     Indication: DRUG USE FOR UNKNOWN INDICATION
     Dosage: 1 MG; UNK; UNKNOWN
  3. CARVEDILOL [Suspect]
     Indication: DRUG USE FOR UNKNOWN INDICATION
     Dosage: 3.12 MG; UNK, UNKNOWN

REACTIONS (4)
  - CYANOSIS [None]
  - DRUG INTERACTION [None]
  - HEART RATE DECREASED [None]
  - NEGATIVE CARDIAC INOTROPIC EFFECT [None]
